FAERS Safety Report 6288386-7 (Version None)
Quarter: 2009Q3

REPORT INFORMATION
  Report Type: 
  Country: None (occurrence: None)
  Receive Date: 20090729
  Receipt Date: 20090721
  Transmission Date: 20100115
  Serious: Yes (Hospitalization)
  Sender: FDA-Public Use
  Company Number: B0586232A

PATIENT
  Age: 14 Year
  Sex: Male

DRUGS (1)
  1. NICOTINE [Suspect]
     Indication: DRUG WITHDRAWAL MAINTENANCE THERAPY
     Dosage: 45GUM PER DAY
     Route: 065

REACTIONS (2)
  - DIZZINESS [None]
  - OVERDOSE [None]
